FAERS Safety Report 8916824 (Version 1)
Quarter: 2012Q4

REPORT INFORMATION
  Report Type: 
  Country: CO (occurrence: CO)
  Receive Date: 20121120
  Receipt Date: 20121120
  Transmission Date: 20130627
  Serious: Yes (Other)
  Sender: FDA-Public Use
  Company Number: CO-AMGEN-COLSP2012073425

PATIENT
  Age: 53 Year
  Sex: Female

DRUGS (5)
  1. ENBREL [Suspect]
     Indication: RHEUMATOID ARTHRITIS
     Dosage: 50 mg, weekly
     Route: 058
     Dates: start: 2004
  2. METHOTREXATE [Concomitant]
     Indication: RHEUMATOID ARTHRITIS
     Dosage: 4 tablet at 2.5 mg, weekly
     Route: 048
     Dates: start: 2004
  3. ALENDRONATE [Concomitant]
     Indication: OSTEOPOROSIS
     Dosage: 70 mg, 1x/day
     Route: 048
     Dates: start: 2009
  4. CALCITRIOL [Concomitant]
     Indication: OSTEOPOROSIS
     Dosage: 25 mg, 1x/day
     Route: 048
     Dates: start: 2009
  5. FOLIC ACID [Concomitant]
     Dosage: 1 mg, 1x/day
     Route: 048
     Dates: start: 2004

REACTIONS (4)
  - Bladder granuloma [Recovering/Resolving]
  - Bladder injury [Unknown]
  - Osteoporosis [Not Recovered/Not Resolved]
  - Visual acuity reduced [Not Recovered/Not Resolved]
